FAERS Safety Report 22661964 (Version 2)
Quarter: 2023Q4

REPORT INFORMATION
  Report Type: Spontaneous
  Country: US (occurrence: US)
  Receive Date: 20230630
  Receipt Date: 20231207
  Transmission Date: 20240110
  Serious: Yes (Other)
  Sender: FDA-Public Use
  Company Number: US-BRISTOL-MYERS SQUIBB COMPANY-2023-092275

PATIENT
  Age: 13 Year
  Sex: Female

DRUGS (1)
  1. REVLIMID [Suspect]
     Active Substance: LENALIDOMIDE
     Indication: Chronic cutaneous lupus erythematosus
     Route: 048

REACTIONS (3)
  - Product dose omission issue [Unknown]
  - Systemic lupus erythematosus [Unknown]
  - Off label use [Unknown]

NARRATIVE: CASE EVENT DATE: 20231101
